FAERS Safety Report 14534238 (Version 1)
Quarter: 2018Q1

REPORT INFORMATION
  Report Type: Spontaneous
  Country: ES (occurrence: ES)
  Receive Date: 20180215
  Receipt Date: 20180215
  Transmission Date: 20180509
  Serious: Yes (Hospitalization)
  Sender: FDA-Public Use
  Company Number: PHHY2018ES021910

PATIENT
  Age: 67 Year
  Sex: Male

DRUGS (7)
  1. AMOXICILLIN AND CLAVULANATE POTASSIUM [Suspect]
     Active Substance: AMOXICILLIN\CLAVULANATE POTASSIUM
     Indication: RESPIRATORY TRACT INFECTION
     Dosage: 1.1.1
     Route: 048
     Dates: start: 20170117, end: 20170123
  2. LEVOFLOXACIN. [Suspect]
     Active Substance: LEVOFLOXACIN
     Indication: RESPIRATORY TRACT INFECTION
     Dosage: 500 MG, QD
     Route: 048
     Dates: start: 20170124, end: 20170202
  3. ALLOPURINOL. [Suspect]
     Active Substance: ALLOPURINOL
     Indication: HYPERURICAEMIA
     Dosage: 1 CP
     Route: 048
     Dates: start: 20160527, end: 20170215
  4. HIDROFEROL [Concomitant]
     Active Substance: CALCIFEDIOL
     Indication: OSTEOPOROSIS
     Dosage: 1 AMP
     Route: 048
  5. VALSARTAN/HCT [Concomitant]
     Active Substance: HYDROCHLOROTHIAZIDE\VALSARTAN
     Indication: PRODUCT USED FOR UNKNOWN INDICATION
     Dosage: 1-0-0
     Route: 048
  6. AZITROMICINA [Suspect]
     Active Substance: AZITHROMYCIN DIHYDRATE
     Indication: RESPIRATORY TRACT INFECTION
     Dosage: 1 CP
     Route: 048
     Dates: start: 20170102, end: 20170106
  7. TAMSULOSINA [Concomitant]
     Active Substance: TAMSULOSIN HYDROCHLORIDE
     Indication: BENIGN PROSTATIC HYPERPLASIA
     Dosage: 1 CP
     Route: 048

REACTIONS (2)
  - Eosinophilia [Recovering/Resolving]
  - Eosinophilic pleural effusion [Recovered/Resolved]

NARRATIVE: CASE EVENT DATE: 20170221
